FAERS Safety Report 8169569-8 (Version None)
Quarter: 2012Q1

REPORT INFORMATION
  Report Type: 
  Country: None (occurrence: None)
  Receive Date: 20120228
  Receipt Date: 20120217
  Transmission Date: 20120608
  Serious: Yes (Hospitalization, Other)
  Sender: FDA-Public Use
  Company Number: US-JNJFOC-20120102457

PATIENT
  Sex: Male

DRUGS (18)
  1. LUPRON [Concomitant]
     Indication: PROSTATE CANCER
     Route: 030
     Dates: start: 20100820
  2. ABIRATERONE ACETATE [Suspect]
     Indication: PROSTATE CANCER
     Route: 048
     Dates: start: 20110830
  3. ALLOPURINOL [Concomitant]
     Indication: GOUT
     Route: 048
  4. SUNITINIB MALATE [Suspect]
     Indication: PROSTATE CANCER
     Route: 065
  5. FLEXERIL [Concomitant]
     Indication: PAIN
     Route: 065
     Dates: start: 20111025
  6. VITAMIN D [Concomitant]
     Indication: MEDICAL DIET
     Route: 048
     Dates: start: 20110311
  7. DASATINIB [Suspect]
     Indication: PROSTATE CANCER
     Route: 048
     Dates: start: 20111025, end: 20111220
  8. LYRICA [Concomitant]
     Indication: PAIN
     Route: 065
     Dates: start: 20111025
  9. ABIRATERONE ACETATE [Suspect]
     Route: 048
  10. VITAMIN B-12 [Concomitant]
     Indication: MEDICAL DIET
     Route: 060
     Dates: start: 20110311
  11. HYDROCODONE [Concomitant]
     Indication: PAIN
     Dosage: 7.5/500 MG
     Route: 048
     Dates: start: 20111024
  12. IRON [Concomitant]
     Indication: MEDICAL DIET
     Route: 048
     Dates: start: 20110311
  13. METAFIBER [Concomitant]
     Indication: CONSTIPATION
     Route: 048
     Dates: start: 20110820
  14. CALCIUM [Concomitant]
     Indication: MEDICAL DIET
     Route: 048
     Dates: start: 20110311
  15. PREDNISONE [Suspect]
     Indication: PROSTATE CANCER
     Route: 048
     Dates: start: 20110830
  16. IBUPROFEN (ADVIL) [Concomitant]
     Indication: GOUT
     Route: 048
     Dates: start: 20110825
  17. CARAFATE [Concomitant]
     Indication: DYSPEPSIA
     Route: 048
     Dates: start: 20111022
  18. MULTI-VITAMINS [Concomitant]
     Indication: MEDICAL DIET
     Route: 048
     Dates: start: 20110311

REACTIONS (1)
  - PNEUMONITIS [None]
